FAERS Safety Report 5635070-6 (Version None)
Quarter: 2008Q1

REPORT INFORMATION
  Report Type: 
  Country: None (occurrence: None)
  Receive Date: 20080222
  Receipt Date: 20080214
  Transmission Date: 20080703
  Serious: Yes (Hospitalization)
  Sender: FDA-Public Use
  Company Number: BE-ABBOTT-08P-013-0435291-00

PATIENT
  Sex: Female
  Weight: 80 kg

DRUGS (8)
  1. ELTHYRONE [Suspect]
     Indication: HYPOTHYROIDISM
     Dates: start: 20071210
  2. ELTHYRONE [Suspect]
     Dates: end: 20071226
  3. BEFACT [Concomitant]
     Indication: DRUG USE FOR UNKNOWN INDICATION
     Dates: end: 20071226
  4. MESALAMINE [Concomitant]
     Indication: DRUG USE FOR UNKNOWN INDICATION
  5. ASPIRIN [Concomitant]
     Indication: DRUG USE FOR UNKNOWN INDICATION
     Dates: end: 20071226
  6. TIZANIDINE HYDROCHLORIDE [Concomitant]
     Indication: DRUG USE FOR UNKNOWN INDICATION
     Dosage: .5-1.5/DAY
  7. SERTRALINE [Concomitant]
     Indication: DRUG USE FOR UNKNOWN INDICATION
     Dates: end: 20071226
  8. LEVOCETIRIZINE [Concomitant]
     Indication: DRUG USE FOR UNKNOWN INDICATION
     Dates: start: 20071210

REACTIONS (3)
  - GENERALISED ERYTHEMA [None]
  - RASH [None]
  - TOXIC SKIN ERUPTION [None]
